FAERS Safety Report 24348673 (Version 2)
Quarter: 2025Q4

REPORT INFORMATION
  Report Type: Spontaneous
  Country: US (occurrence: US)
  Receive Date: 20240923
  Receipt Date: 20251007
  Transmission Date: 20260118
  Serious: Yes (Hospitalization)
  Sender: ACCORD
  Company Number: US-Accord-433221

PATIENT
  Age: 70 Year
  Sex: Female
  Weight: 86.8 kg

DRUGS (2)
  1. GLIMEPIRIDE [Suspect]
     Active Substance: GLIMEPIRIDE
     Indication: Type 2 diabetes mellitus
     Dosage: 1X/DAY
     Route: 048
     Dates: start: 2014, end: 20240622
  2. INFLUENZA VIRUS VACCINE [Concomitant]
     Active Substance: INFLUENZA VIRUS VACCINE
     Indication: Influenza
     Dosage: 75 UG SINGLE, (TIRV5 (NOT PREFORMULATED) MODRNA HA AND NA)
     Route: 030
     Dates: start: 20240621, end: 20240621

REACTIONS (1)
  - Hypoglycaemia [Recovered/Resolved]

NARRATIVE: CASE EVENT DATE: 20240622
